FAERS Safety Report 10412412 (Version 1)
Quarter: 2014Q3

REPORT INFORMATION
  Report Type: Spontaneous
  Country: JP (occurrence: None)
  Receive Date: 20140822
  Receipt Date: 20140822
  Transmission Date: 20150326
  Serious: Yes (Hospitalization)
  Sender: FDA-Public Use
  Company Number: JP-ZYDUS-004038

PATIENT
  Age: 78 Year
  Sex: Female

DRUGS (1)
  1. WARFARIN [Suspect]
     Active Substance: WARFARIN
     Indication: ATRIAL FIBRILLATION

REACTIONS (8)
  - Lip haemorrhage [None]
  - Renal failure [None]
  - Activated partial thromboplastin time prolonged [None]
  - Leukocytosis [None]
  - Vitamin K deficiency [None]
  - International normalised ratio abnormal [None]
  - Anaemia [None]
  - Coagulopathy [None]
